FAERS Safety Report 8385864-1 (Version None)
Quarter: 2012Q2

REPORT INFORMATION
  Report Type: 
  Country: None (occurrence: None)
  Receive Date: 20120523
  Receipt Date: 20120509
  Transmission Date: 20120825
  Serious: Yes (Hospitalization)
  Sender: FDA-Public Use
  Company Number: TPA2012A01644

PATIENT
  Sex: Male

DRUGS (4)
  1. PREDNISONE TAB [Concomitant]
  2. METOPROLOL TARTRATE [Suspect]
  3. ULORIC [Suspect]
     Indication: GOUT
     Dosage: 80 MG, 1 IN 1 D, PER ORAL
     Route: 048
     Dates: start: 20100701
  4. COLCRYS [Concomitant]

REACTIONS (7)
  - GOUT [None]
  - HERNIA REPAIR [None]
  - HEART RATE DECREASED [None]
  - DEEP VEIN THROMBOSIS [None]
  - THERAPY CESSATION [None]
  - POST PROCEDURAL INFECTION [None]
  - DIVERTICULITIS [None]
